FAERS Safety Report 8359449-7 (Version None)
Quarter: 2012Q2

REPORT INFORMATION
  Report Type: 
  Country: None (occurrence: None)
  Receive Date: 20120514
  Receipt Date: 20120514
  Transmission Date: 20120825
  Serious: Yes (Death, Hospitalization)
  Sender: FDA-Public Use
  Company Number: None

PATIENT
  Sex: Male
  Weight: 105 kg

DRUGS (2)
  1. DAUNORUBICIN HYDROCHLORIDE [Suspect]
     Dosage: 396 MG
     Dates: end: 20120422
  2. CYTARABINE [Suspect]
     Dosage: 1540 MG
     Dates: end: 20120426

REACTIONS (8)
  - PNEUMONITIS [None]
  - FUNGAL INFECTION [None]
  - RENAL IMPAIRMENT [None]
  - RESPIRATORY DISTRESS [None]
  - PANCYTOPENIA [None]
  - BACTERIAL INFECTION [None]
  - FEBRILE NEUTROPENIA [None]
  - BLOOD CULTURE POSITIVE [None]
